FAERS Safety Report 11288097 (Version 1)
Quarter: 2015Q3

REPORT INFORMATION
  Report Type: Spontaneous
  Country: US (occurrence: US)
  Receive Date: 20150721
  Receipt Date: 20150721
  Transmission Date: 20151125
  Serious: No
  Sender: FDA-Public Use
  Company Number: US-UNITED THERAPEUTICS-UNT-2015-002553

PATIENT
  Sex: Female

DRUGS (1)
  1. REMODULIN [Suspect]
     Active Substance: TREPROSTINIL
     Indication: PULMONARY ARTERIAL HYPERTENSION
     Dosage: 42 ML,QH
     Route: 041
     Dates: start: 20120120

REACTIONS (4)
  - Nausea [Unknown]
  - Pain [Unknown]
  - Heart rate increased [Unknown]
  - Localised infection [Unknown]

NARRATIVE: CASE EVENT DATE: 20150304
